FAERS Safety Report 7506878-7 (Version None)
Quarter: 2011Q2

REPORT INFORMATION
  Report Type: 
  Country: None (occurrence: None)
  Receive Date: 20110526
  Receipt Date: 20110524
  Transmission Date: 20111010
  Serious: Yes (Hospitalization)
  Sender: FDA-Public Use
  Company Number: US-AMGEN-USASP2011027083

PATIENT
  Sex: Female

DRUGS (2)
  1. NPLATE [Suspect]
     Indication: IDIOPATHIC THROMBOCYTOPENIC PURPURA
     Dosage: 2.0 A?G/KG, UNK
     Dates: start: 20110407, end: 20110408
  2. CORTICOSTEROIDS [Concomitant]

REACTIONS (1)
  - HOSPITALISATION [None]
